FAERS Safety Report 24410104 (Version 1)
Quarter: 2024Q4

REPORT INFORMATION
  Report Type: Spontaneous
  Country: US (occurrence: US)
  Receive Date: 20241008
  Receipt Date: 20241008
  Transmission Date: 20250115
  Serious: Yes (Death, Life-Threatening, Hospitalization, Other)
  Sender: BRISTOL MYERS SQUIBB
  Company Number: US-MLMSERVICE-20240923-PI201533-00271-1

PATIENT
  Age: 77 Year
  Sex: Female

DRUGS (3)
  1. AZACITIDINE [Suspect]
     Active Substance: AZACITIDINE
     Indication: Acute myeloid leukaemia
     Dosage: C2D1
  2. PREDNISONE [Suspect]
     Active Substance: PREDNISONE
     Indication: Autoimmune hepatitis
  3. VENETOCLAX [Suspect]
     Active Substance: VENETOCLAX
     Indication: Acute myeloid leukaemia
     Dosage: C2D1

REACTIONS (6)
  - Bacteraemia [Unknown]
  - Stomatitis [Unknown]
  - Pulmonary haemorrhage [Unknown]
  - Pancytopenia [Unknown]
  - Febrile neutropenia [Unknown]
  - Pneumonia bacterial [Fatal]
